FAERS Safety Report 4911730-7 (Version None)
Quarter: 2006Q1

REPORT INFORMATION
  Report Type: 
  Country: None (occurrence: None)
  Receive Date: 20060213
  Receipt Date: 20060130
  Transmission Date: 20060701
  Serious: Yes (Hospitalization)
  Sender: FDA-Public Use
  Company Number: B0408750A

PATIENT
  Age: 42 Year
  Sex: Female

DRUGS (3)
  1. ESKALITH [Suspect]
  2. BENZODIAZEPINES [Concomitant]
  3. NEUROLEPTIC [Concomitant]

REACTIONS (13)
  - ACUTE RESPIRATORY DISTRESS SYNDROME [None]
  - APHAGIA [None]
  - APHASIA [None]
  - DIFFICULTY IN WALKING [None]
  - MASKED FACIES [None]
  - MENTAL STATUS CHANGES [None]
  - MUSCLE RIGIDITY [None]
  - STUPOR [None]
  - TACHYCARDIA [None]
  - THERAPEUTIC AGENT TOXICITY [None]
  - TREMOR [None]
  - UNRESPONSIVE TO VERBAL STIMULI [None]
  - VOMITING [None]
